FAERS Safety Report 18356343 (Version 6)
Quarter: 2023Q2

REPORT INFORMATION
  Report Type: Report from Study
  Country: JP (occurrence: JP)
  Receive Date: 20201007
  Receipt Date: 20230623
  Transmission Date: 20230721
  Serious: Yes (Death, Life-Threatening, Hospitalization)
  Sender: FDA-Public Use
  Company Number: JP-JNJFOC-20200950654

PATIENT
  Age: 72 Year
  Sex: Male
  Weight: 52.3 kg

DRUGS (5)
  1. TREMFYA [Suspect]
     Active Substance: GUSELKUMAB
     Indication: Palmoplantar pustulosis
     Dosage: EVERY1-2MONTHS
     Route: 058
     Dates: start: 20200602, end: 20200630
  2. TREMFYA [Suspect]
     Active Substance: GUSELKUMAB
     Indication: Pustulotic arthro-osteitis
  3. TREMFYA [Suspect]
     Active Substance: GUSELKUMAB
  4. OTEZLA [Concomitant]
     Active Substance: APREMILAST
     Indication: Palmoplantar pustulosis
     Route: 048
     Dates: start: 20200214, end: 20200904
  5. OTEZLA [Concomitant]
     Active Substance: APREMILAST
     Indication: Pustulotic arthro-osteitis

REACTIONS (1)
  - Angioimmunoblastic T-cell lymphoma [Fatal]

NARRATIVE: CASE EVENT DATE: 20200825
